FAERS Safety Report 7264629-8 (Version None)
Quarter: 2011Q1

REPORT INFORMATION
  Report Type: 
  Country: None (occurrence: None)
  Receive Date: 20110131
  Receipt Date: 20110124
  Transmission Date: 20110831
  Serious: Yes (Other)
  Sender: FDA-Public Use
  Company Number: US-PFIZER INC-2011016899

PATIENT
  Sex: Female
  Weight: 65.8 kg

DRUGS (1)
  1. PREMPRO [Suspect]
     Indication: VULVOVAGINAL DRYNESS
     Dosage: 0.625/2.5 MG, DAILY
     Dates: start: 20100401, end: 20110122

REACTIONS (3)
  - VAGINAL HAEMORRHAGE [None]
  - CERVIX HAEMORRHAGE UTERINE [None]
  - METRORRHAGIA [None]
